FAERS Safety Report 8146886-9 (Version None)
Quarter: 2012Q1

REPORT INFORMATION
  Report Type: 
  Country: None (occurrence: None)
  Receive Date: 20120217
  Receipt Date: 20120207
  Transmission Date: 20120608
  Serious: Yes (Other)
  Sender: FDA-Public Use
  Company Number: US-ABBOTT-12P-163-0903312-00

PATIENT
  Age: 18 Year
  Sex: Female

DRUGS (2)
  1. ACETAMINOPHEN [Concomitant]
     Indication: PAIN
     Dosage: TAKEN AS NEEDED FOR QUITE SOME TIME
     Route: 048
  2. HUMIRA [Suspect]
     Indication: CROHN'S DISEASE
     Dates: start: 20110701

REACTIONS (21)
  - OROPHARYNGEAL PAIN [None]
  - RESPIRATORY TRACT CONGESTION [None]
  - GINGIVAL BLEEDING [None]
  - COLD SWEAT [None]
  - BLOOD IRON DECREASED [None]
  - COUGH [None]
  - HYPOAESTHESIA ORAL [None]
  - OEDEMA PERIPHERAL [None]
  - SENSATION OF PRESSURE [None]
  - NASOPHARYNGITIS [None]
  - RHINORRHOEA [None]
  - SKIN DISCOLOURATION [None]
  - HYPERTONIC BLADDER [None]
  - CHEST PAIN [None]
  - LYMPHADENOPATHY [None]
  - SMALL INTESTINAL OBSTRUCTION [None]
  - PYREXIA [None]
  - INCISION SITE PAIN [None]
  - POLLAKIURIA [None]
  - PALLOR [None]
  - FATIGUE [None]
